FAERS Safety Report 13961992 (Version 2)
Quarter: 2017Q4

REPORT INFORMATION
  Report Type: Report from Study
  Country: JP (occurrence: JP)
  Receive Date: 20170912
  Receipt Date: 20171120
  Transmission Date: 20180320
  Serious: Yes (Death)
  Sender: FDA-Public Use
  Company Number: JP-BAUSCH-BL-2017-026882

PATIENT
  Age: 65 Year
  Sex: Female

DRUGS (8)
  1. RIFXIMA TABLETS 200 MG [Suspect]
     Active Substance: RIFAXIMIN
     Indication: HYPERAMMONAEMIA
     Route: 048
     Dates: start: 20170202, end: 20170421
  2. TERUFIS [Concomitant]
     Indication: HYPERAMMONAEMIA
     Route: 041
     Dates: start: 20160708, end: 20170421
  3. PORTOLAC [Concomitant]
     Active Substance: LACTITOL
     Indication: HYPERAMMONAEMIA
     Route: 048
     Dates: start: 20141204, end: 20170421
  4. SPIRONOLACTONE. [Concomitant]
     Active Substance: SPIRONOLACTONE
     Indication: HYPERTENSION
  5. GLIMEPIRIDE. [Concomitant]
     Active Substance: GLIMEPIRIDE
     Indication: TYPE 2 DIABETES MELLITUS
     Route: 048
     Dates: start: 20160603, end: 20170421
  6. SPIRONOLACTONE. [Concomitant]
     Active Substance: SPIRONOLACTONE
     Indication: POLYURIA
     Route: 048
     Dates: start: 20160601, end: 20170421
  7. JANUVIA [Concomitant]
     Active Substance: SITAGLIPTIN PHOSPHATE
     Indication: TYPE 2 DIABETES MELLITUS
     Route: 048
     Dates: start: 20160603, end: 20170421
  8. SPIRONOLACTONE. [Concomitant]
     Active Substance: SPIRONOLACTONE
     Indication: ASCITES

REACTIONS (3)
  - General physical health deterioration [Fatal]
  - Dyspnoea [Unknown]
  - Abdominal distension [Fatal]

NARRATIVE: CASE EVENT DATE: 20170207
